FAERS Safety Report 10094551 (Version 2)
Quarter: 2014Q2

REPORT INFORMATION
  Report Type: Spontaneous
  Country: US (occurrence: US)
  Receive Date: 20140422
  Receipt Date: 20140422
  Transmission Date: 20141212
  Serious: No
  Sender: FDA-Public Use
  Company Number: US-SA-200022306US

PATIENT
  Age: 65 Year
  Sex: Male

DRUGS (8)
  1. ALLEGRA-D, 12 HR [Suspect]
     Indication: NASOPHARYNGITIS
     Dosage: DOSE AS USED: 60MG/120MG
     Route: 048
     Dates: start: 20001127
  2. ALLEGRA-D, 12 HR [Suspect]
     Indication: UNEVALUABLE EVENT
     Dosage: DOSE AS USED: 60MG/120MG
     Route: 048
     Dates: start: 20001127
  3. ASPIRIN [Concomitant]
     Dosage: DOSE AS USED: 1 TABLET
     Route: 048
  4. HYDRALAZINE [Concomitant]
     Route: 048
  5. NAPROXEN [Concomitant]
  6. ZANTAC [Concomitant]
  7. ZESTRIL [Concomitant]
     Dates: start: 20001114
  8. ZOCOR ^MSD^ [Concomitant]

REACTIONS (2)
  - Blood pressure decreased [Recovering/Resolving]
  - Migraine [Unknown]
